FAERS Safety Report 5665439-5 (Version None)
Quarter: 2008Q1

REPORT INFORMATION
  Report Type: 
  Country: None (occurrence: None)
  Receive Date: 20080314
  Receipt Date: 20071203
  Transmission Date: 20080703
  Serious: No
  Sender: FDA-Public Use
  Company Number: US-ABBOTT-07P-163-0427517-00

PATIENT
  Sex: Male
  Weight: 100 kg

DRUGS (5)
  1. HUMIRA [Suspect]
     Indication: ANKYLOSING SPONDYLITIS
     Route: 058
     Dates: start: 20071102, end: 20071130
  2. MONTELUKAST SODIUM [Concomitant]
     Indication: SEASONAL ALLERGY
     Route: 048
  3. CETIRIZINE HCL [Concomitant]
     Indication: SEASONAL ALLERGY
     Route: 048
  4. ATORVASTATIN CALCIUM [Concomitant]
     Indication: BLOOD CHOLESTEROL INCREASED
     Route: 048
  5. MELOXICAM [Concomitant]
     Indication: ARTHRALGIA
     Route: 048

REACTIONS (3)
  - CHEST DISCOMFORT [None]
  - NASOPHARYNGITIS [None]
  - PAIN [None]
